FAERS Safety Report 6580124-3 (Version None)
Quarter: 2010Q1

REPORT INFORMATION
  Report Type: 
  Country: None (occurrence: None)
  Receive Date: 20100212
  Receipt Date: 20090213
  Transmission Date: 20100710
  Serious: Yes (Hospitalization)
  Sender: FDA-Public Use
  Company Number: ES-PFIZER INC-2008088875

PATIENT
  Age: 51 Year
  Sex: Female

DRUGS (4)
  1. AXITINIB [Suspect]
     Indication: COLORECTAL CANCER
     Dosage: 7 MG, 2X/DAY
     Route: 048
     Dates: start: 20080909
  2. IRINOTECAN HCL [Suspect]
     Indication: COLORECTAL CANCER
     Dosage: 281 MG, EVERY 2 WEEKS
     Route: 042
     Dates: start: 20080909
  3. FLUOROURACIL [Suspect]
     Indication: COLORECTAL CANCER
     Dosage: 4368 MG, EVERY 2 WEEKS
     Route: 042
     Dates: start: 20080909
  4. *CALCIUM FOLINATE [Suspect]
     Indication: COLORECTAL CANCER
     Dosage: 624 MG, EVERY 2 WEEKS
     Route: 042
     Dates: start: 20080909

REACTIONS (1)
  - OTOSALPINGITIS [None]
